FAERS Safety Report 6401250-5 (Version None)
Quarter: 2009Q4

REPORT INFORMATION
  Report Type: 
  Country: None (occurrence: None)
  Receive Date: 20091009
  Receipt Date: 20091009
  Transmission Date: 20100525
  Serious: Yes (Hospitalization)
  Sender: FDA-Public Use
  Company Number: None

PATIENT
  Age: 16 Year
  Sex: Female
  Weight: 73 kg

DRUGS (2)
  1. PROVOCHOLINE [Suspect]
     Dosage: 5MG/ML 1 BREATH INHAL
     Route: 055
  2. PROVOCHOLINE [Suspect]

REACTIONS (1)
  - DRUG EFFECT DECREASED [None]
